FAERS Safety Report 10051520 (Version 2)
Quarter: 2014Q2

REPORT INFORMATION
  Report Type: Spontaneous
  Country: DE (occurrence: DE)
  Receive Date: 20140401
  Receipt Date: 20140401
  Transmission Date: 20141212
  Serious: Yes (Death, Hospitalization)
  Sender: FDA-Public Use
  Company Number: DE-JNJFOC-20140215682

PATIENT
  Sex: Female
  Weight: 70 kg

DRUGS (10)
  1. XARELTO [Suspect]
     Indication: PULMONARY EMBOLISM
     Route: 048
     Dates: start: 20131210, end: 20131227
  2. MARCUMAR [Concomitant]
     Route: 065
  3. WARFARIN [Concomitant]
     Route: 065
  4. OMEPRAZOLE [Concomitant]
     Route: 065
  5. NOVALGIN [Concomitant]
     Route: 065
  6. TILIDIN [Concomitant]
     Route: 065
  7. LEFLUNOMIDE [Concomitant]
     Route: 065
  8. PREDNISOLON [Concomitant]
     Route: 065
  9. BISOPROLOL [Concomitant]
     Route: 065
  10. TORASEMID [Concomitant]
     Route: 065

REACTIONS (2)
  - Gastrointestinal haemorrhage [Fatal]
  - General physical health deterioration [Unknown]
